FAERS Safety Report 5695994-0 (Version None)
Quarter: 2008Q2

REPORT INFORMATION
  Report Type: 
  Country: None (occurrence: None)
  Receive Date: 20080407
  Receipt Date: 20080401
  Transmission Date: 20081010
  Serious: Yes (Hospitalization, Other)
  Sender: FDA-Public Use
  Company Number: US-MERCK-0804USA01055

PATIENT
  Sex: Male

DRUGS (1)
  1. ZOLINZA [Suspect]
     Indication: MYCOSIS FUNGOIDES
     Route: 048

REACTIONS (1)
  - RASH GENERALISED [None]
